FAERS Safety Report 4867254-9 (Version None)
Quarter: 2005Q4

REPORT INFORMATION
  Report Type: 
  Country: None (occurrence: None)
  Receive Date: 20051228
  Receipt Date: 20051114
  Transmission Date: 20060501
  Serious: Yes (Death, Disabling)
  Sender: FDA-Public Use
  Company Number: JP-BRISTOL-MYERS SQUIBB COMPANY-13180484

PATIENT
  Age: 68 Year
  Sex: Female

DRUGS (2)
  1. TAXOL [Suspect]
     Indication: LUNG NEOPLASM MALIGNANT
     Route: 042
     Dates: start: 20050927, end: 20050927
  2. PARAPLATIN [Suspect]
     Indication: LUNG NEOPLASM MALIGNANT
     Route: 042
     Dates: start: 20050927, end: 20050927

REACTIONS (2)
  - CEREBRAL ARTERY EMBOLISM [None]
  - MALIGNANT NEOPLASM PROGRESSION [None]
